FAERS Safety Report 16889770 (Version 4)
Quarter: 2020Q3

REPORT INFORMATION
  Report Type: Report from Study
  Country: US (occurrence: US)
  Receive Date: 20191007
  Receipt Date: 20200813
  Transmission Date: 20201102
  Serious: Yes (Other)
  Sender: FDA-Public Use
  Company Number: US-ROCHE-2415060

PATIENT
  Age: 57 Year
  Sex: Female
  Weight: 96.2 kg

DRUGS (3)
  1. ATEZOLIZUMAB. [Suspect]
     Active Substance: ATEZOLIZUMAB
     Indication: BILIARY NEOPLASM
  2. COBIMETINIB. [Suspect]
     Active Substance: COBIMETINIB
     Indication: CHOLANGIOCARCINOMA
     Dosage: MOST RECENT DOSE: 09/SEP/2019
     Route: 048
     Dates: start: 20180605, end: 20190924
  3. ATEZOLIZUMAB. [Suspect]
     Active Substance: ATEZOLIZUMAB
     Indication: CHOLANGIOCARCINOMA
     Dosage: MOST RECENT DOSE : 27/AUG/2019
     Route: 042
     Dates: start: 20180605, end: 20190924

REACTIONS (4)
  - Anaemia [Recovered/Resolved]
  - Myasthenia gravis [Recovering/Resolving]
  - Hyponatraemia [Unknown]
  - Peripheral motor neuropathy [Unknown]

NARRATIVE: CASE EVENT DATE: 20190910
